FAERS Safety Report 5226104-1 (Version None)
Quarter: 2007Q1

REPORT INFORMATION
  Report Type: 
  Country: None (occurrence: None)
  Receive Date: 20070129
  Receipt Date: 20070119
  Transmission Date: 20070707
  Serious: Yes (Hospitalization, Other)
  Sender: FDA-Public Use
  Company Number: 150764ISR

PATIENT
  Sex: Female

DRUGS (2)
  1. PACLITAXEL 6 MG/ML (PACLITAXEL) [Suspect]
     Indication: OVARIAN CANCER METASTATIC
     Dosage: 6MG/ML
     Dates: start: 20061001
  2. CISPLATIN [Concomitant]

REACTIONS (3)
  - ABNORMAL BEHAVIOUR [None]
  - MENTAL DISORDER [None]
  - PERSONALITY CHANGE [None]
